FAERS Safety Report 20063194 (Version 1)
Quarter: 2021Q4

REPORT INFORMATION
  Report Type: Spontaneous
  Country: US (occurrence: None)
  Receive Date: 20211111
  Receipt Date: 20211111
  Transmission Date: 20220303
  Serious: Yes (Hospitalization)
  Sender: FDA-Public Use
  Company Number: None

PATIENT
  Age: 73 Year
  Sex: Female
  Weight: 73 kg

DRUGS (1)
  1. ZARXIO [Suspect]
     Active Substance: FILGRASTIM-SNDZ
     Indication: Lung neoplasm malignant
     Dosage: OTHER FREQUENCY : THREE TIMES WEEKLY;?
     Route: 058
     Dates: start: 20210630

REACTIONS (2)
  - Therapy interrupted [None]
  - Hospitalisation [None]

NARRATIVE: CASE EVENT DATE: 20211110
